FAERS Safety Report 24634735 (Version 2)
Quarter: 2024Q4

REPORT INFORMATION
  Report Type: Spontaneous
  Country: US (occurrence: US)
  Receive Date: 20241119
  Receipt Date: 20241125
  Transmission Date: 20250115
  Serious: No
  Sender: DR REDDYS
  Company Number: US-MLMSERVICE-20241031-PI239493-00275-1

PATIENT
  Age: 35 Year
  Sex: Female

DRUGS (16)
  1. QUETIAPINE [Suspect]
     Active Substance: QUETIAPINE
     Indication: Bipolar II disorder
     Dosage: NIGHTLY
  2. QUETIAPINE [Suspect]
     Active Substance: QUETIAPINE
     Dosage: NIGHTLY
  3. LURASIDONE [Suspect]
     Active Substance: LURASIDONE
     Indication: Bipolar II disorder
  4. LURASIDONE [Suspect]
     Active Substance: LURASIDONE
     Dosage: 80MG DAILY OVER A 3-MONTH PERIOD
  5. LURASIDONE [Suspect]
     Active Substance: LURASIDONE
     Dosage: TITRATED TO 120 MG DAILY
  6. LURASIDONE [Suspect]
     Active Substance: LURASIDONE
     Dosage: INCREASED TO 160 MG DAILY.
  7. LURASIDONE [Suspect]
     Active Substance: LURASIDONE
     Dosage: SPLITTING LURASIDONE DOSING TO 80 MG TWICE DAILY
  8. LURASIDONE [Suspect]
     Active Substance: LURASIDONE
     Dosage: DECREASED TO 120 MG DAILY
  9. LURASIDONE [Suspect]
     Active Substance: LURASIDONE
     Dosage: NOW AT 80 MG EVERY OTHER DAY
  10. SEMAGLUTIDE [Suspect]
     Active Substance: SEMAGLUTIDE
     Indication: Weight decreased
     Dosage: 0.25 MG SUBCUTANEOUSLY WEEKLY
     Route: 058
  11. SEMAGLUTIDE [Suspect]
     Active Substance: SEMAGLUTIDE
     Dosage: WAS DOSED AT 1 MG WEEKLY
  12. SEMAGLUTIDE [Suspect]
     Active Substance: SEMAGLUTIDE
     Dosage: 1.7 MG WEEKLY
  13. SEMAGLUTIDE [Suspect]
     Active Substance: SEMAGLUTIDE
     Dosage: GIVEN AT 2.4 MG WEEKLY.
  14. LAMOTRIGINE [Concomitant]
     Active Substance: LAMOTRIGINE
     Indication: Product used for unknown indication
  15. GABAPENTIN [Concomitant]
     Active Substance: GABAPENTIN
     Indication: Product used for unknown indication
  16. GABAPENTIN [Concomitant]
     Active Substance: GABAPENTIN

REACTIONS (4)
  - Weight increased [Unknown]
  - Hyperphagia [Unknown]
  - Nausea [Recovered/Resolved]
  - Drug interaction [Unknown]
